FAERS Safety Report 8490929-X (Version None)
Quarter: 2012Q2

REPORT INFORMATION
  Report Type: 
  Country: None (occurrence: None)
  Receive Date: 20120629
  Receipt Date: 20120629
  Transmission Date: 20120825
  Serious: Yes (Other)
  Sender: FDA-Public Use
  Company Number: None

PATIENT
  Age: 69 Year
  Sex: Male
  Weight: 96 kg

DRUGS (3)
  1. ASPIRIN [Concomitant]
  2. ATORVASTATIN [Concomitant]
  3. IPILIMUMAB [Suspect]
     Indication: METASTATIC MALIGNANT MELANOMA
     Dosage: 3M/KG -300MG- ONCE IV
     Route: 042
     Dates: start: 20120627, end: 20120627

REACTIONS (3)
  - CHILLS [None]
  - INFUSION RELATED REACTION [None]
  - FEELING COLD [None]
